FAERS Safety Report 9887717 (Version 1)
Quarter: 2014Q1

REPORT INFORMATION
  Report Type: Spontaneous
  Country: US (occurrence: None)
  Receive Date: 20140206
  Receipt Date: 20140206
  Transmission Date: 20141002
  Serious: Yes (Other)
  Sender: FDA-Public Use
  Company Number: US-ZYDUS-002486

PATIENT
  Age: 69 Year
  Sex: Male

DRUGS (2)
  1. AZATHIOPRINE (AZATHIOPRINE) [Suspect]
  2. CAPECITABINE (CAPECITABINE) (CAPECITABINE) [Suspect]

REACTIONS (1)
  - Myelodysplastic syndrome [None]
